FAERS Safety Report 7764125-5 (Version None)
Quarter: 2011Q3

REPORT INFORMATION
  Report Type: 
  Country: None (occurrence: None)
  Receive Date: 20110921
  Receipt Date: 20110909
  Transmission Date: 20111222
  Serious: Yes (Hospitalization, Other)
  Sender: FDA-Public Use
  Company Number: US-ELI_LILLY_AND_COMPANY-US201103005434

PATIENT
  Sex: Female
  Weight: 84 kg

DRUGS (14)
  1. INSULIN LISPRO [Concomitant]
     Route: 058
  2. VITAMIN D [Concomitant]
     Dosage: 50000 U, UNK
     Route: 048
  3. CALCIUM CARBONATE [Concomitant]
     Dosage: 650 MG, UNK
     Route: 048
  4. CRESTOR [Concomitant]
     Dosage: 40 MG, UNK
     Route: 048
  5. FERROUS SULFATE TAB [Concomitant]
     Route: 048
  6. ASPIRIN [Concomitant]
     Dosage: 81 MG, UNK
     Route: 048
  7. MULTI-VITAMINS [Concomitant]
     Route: 048
  8. MULTIVITAMINS WITH IRON            /02277801/ [Concomitant]
     Dosage: UNK, QD
     Route: 048
  9. FORTEO [Suspect]
     Indication: OSTEOPOROSIS
     Dosage: 20 UG, DAILY (1/D)
     Route: 058
     Dates: start: 20091201
  10. LAC-HYDRIN [Concomitant]
     Route: 061
  11. HYDROCORTISONE [Concomitant]
     Route: 061
  12. LISINOPRIL [Concomitant]
     Dosage: 40 UNK, UNK
     Route: 048
  13. FORTEO [Suspect]
     Dosage: 20 UG, DAILY (1/D)
     Route: 058
  14. INSULIN [Concomitant]
     Dosage: UNK, 3/D
     Route: 065

REACTIONS (4)
  - BACK PAIN [None]
  - HERNIA [None]
  - GASTROINTESTINAL STOMA COMPLICATION [None]
  - SMALL INTESTINAL OBSTRUCTION [None]
